FAERS Safety Report 9821876 (Version 2)
Quarter: 2014Q1

REPORT INFORMATION
  Report Type: Spontaneous
  Country: US (occurrence: US)
  Receive Date: 20140116
  Receipt Date: 20140116
  Transmission Date: 20141002
  Serious: Yes (Hospitalization)
  Sender: FDA-Public Use
  Company Number: US-B.I. PHARMACEUTICALS,INC./RIDGEFIELD-2013-BI-23842BP

PATIENT
  Age: 76 Year
  Sex: Male
  Weight: 81.65 kg

DRUGS (15)
  1. PRADAXA [Suspect]
     Indication: ATRIAL FIBRILLATION
     Dates: start: 20111213, end: 20120423
  2. RITUXIN [Concomitant]
     Indication: CHRONIC LYMPHOCYTIC LEUKAEMIA
  3. ASPIRIN [Concomitant]
     Dates: end: 20120415
  4. LOSARTAN [Concomitant]
  5. HYDROCHLOROTHIAZIDE [Concomitant]
  6. PRESERVISION [Concomitant]
  7. LOTRISONE CREAM [Concomitant]
  8. SYNTHROID [Concomitant]
  9. PROBIOTIC [Concomitant]
  10. METFORMIN [Concomitant]
  11. ECOTRIN [Concomitant]
  12. LANOXIN [Concomitant]
  13. CARDIZEM [Concomitant]
  14. LASIX [Concomitant]
  15. KLOR-CON [Concomitant]

REACTIONS (1)
  - Haematuria [Unknown]
